FAERS Safety Report 4693747-3 (Version None)
Quarter: 2005Q2

REPORT INFORMATION
  Report Type: 
  Country: None (occurrence: None)
  Receive Date: 20050615
  Receipt Date: 20050225
  Transmission Date: 20051028
  Serious: Yes (Hospitalization)
  Sender: FDA-Public Use
  Company Number: 6013279

PATIENT
  Age: 81 Year
  Sex: Male

DRUGS (4)
  1. CARDENSIEL                 (BISOPROLOL) [Suspect]
     Indication: DRUG USE FOR UNKNOWN INDICATION
     Route: 048
  2. FUROSEMIDE [Suspect]
     Indication: DRUG USE FOR UNKNOWN INDICATION
     Dosage: ORAL
     Route: 048
  3. COVERSYL [Suspect]
     Indication: DRUG USE FOR UNKNOWN INDICATION
     Route: 048
  4. PLAVIX [Suspect]

REACTIONS (3)
  - ANGIODYSPLASIA [None]
  - IMPAIRED HEALING [None]
  - UPPER GASTROINTESTINAL HAEMORRHAGE [None]
